FAERS Safety Report 17406097 (Version 1)
Quarter: 2020Q1

REPORT INFORMATION
  Report Type: Report from Study
  Country: US (occurrence: US)
  Receive Date: 20200212
  Receipt Date: 20200212
  Transmission Date: 20200409
  Serious: Yes (Hospitalization, Other)
  Sender: FDA-Public Use
  Company Number: US-HORIZON-ACT-0009-2020

PATIENT
  Age: 11 Month
  Sex: Male

DRUGS (1)
  1. ACTIMMUNE [Suspect]
     Active Substance: INTERFERON GAMMA-1B
     Indication: CHRONIC GRANULOMATOUS DISEASE
     Dosage: 100MCG THREE TIMES WEEKLY
     Route: 058
     Dates: start: 20190513

REACTIONS (5)
  - Chronic granulomatous disease [Unknown]
  - Condition aggravated [Unknown]
  - Drug ineffective [Unknown]
  - Bone marrow conditioning regimen [Unknown]
  - Infection [Unknown]
